FAERS Safety Report 24616533 (Version 1)
Quarter: 2024Q4

REPORT INFORMATION
  Report Type: Report from Study
  Country: US (occurrence: US)
  Receive Date: 20241114
  Receipt Date: 20241114
  Transmission Date: 20250115
  Serious: Yes (Other)
  Sender: JOHNSON AND JOHNSON
  Company Number: US-JNJFOC-20241067650

PATIENT
  Age: 62 Year
  Sex: Male

DRUGS (3)
  1. SPRAVATO [Suspect]
     Active Substance: ESKETAMINE
     Indication: Depression
     Dosage: ^56 MG, 2 TOTAL DOSES^
     Dates: start: 20241016, end: 20241018
  2. SPRAVATO [Suspect]
     Active Substance: ESKETAMINE
     Dosage: ^84 MG, 5 TOTAL DOSES^
     Dates: start: 20241022, end: 20241105
  3. DICYCLOMINE [Concomitant]
     Active Substance: DICYCLOMINE HYDROCHLORIDE
     Indication: Gastrointestinal disorder
     Route: 065

REACTIONS (8)
  - Suicidal ideation [Unknown]
  - Affect lability [Unknown]
  - Memory impairment [Not Recovered/Not Resolved]
  - Tearfulness [Unknown]
  - Disturbance in attention [Unknown]
  - Feeling abnormal [Unknown]
  - Agitation [Unknown]
  - Depression [Unknown]

NARRATIVE: CASE EVENT DATE: 20240101
